FAERS Safety Report 8906308 (Version 1)
Quarter: 2012Q4

REPORT INFORMATION
  Report Type: Spontaneous
  Country: GB (occurrence: None)
  Receive Date: 20121107
  Receipt Date: 20121107
  Transmission Date: 20130627
  Serious: Yes (Other)
  Sender: FDA-Public Use
  Company Number: AUR-APL-2012-04630

PATIENT
  Age: 72 Year
  Sex: Male
  Weight: 89 kg

DRUGS (7)
  1. SIMVASTATIN [Suspect]
     Indication: CHOLESTEROL HIGH
     Route: 048
     Dates: start: 20120904
  2. ASPIRIN [Concomitant]
  3. CETIRIZINE [Concomitant]
  4. FUROSEMIDE (FUROSEMIDE) [Concomitant]
  5. PARACETAMOL [Concomitant]
  6. RAMIPRIL (RAMIPRIL) [Concomitant]
  7. TRAMADOL (TRAMADOL) [Concomitant]

REACTIONS (1)
  - Increased upper airway secretion [None]
